FAERS Safety Report 25120718 (Version 1)
Quarter: 2025Q1

REPORT INFORMATION
  Report Type: Spontaneous
  Country: VN (occurrence: VN)
  Receive Date: 20250325
  Receipt Date: 20250325
  Transmission Date: 20250408
  Serious: Yes (Hospitalization)
  Sender: MERCK SHARP & DOHME LLC
  Company Number: VN-009507513-2266364

PATIENT
  Age: 4 Year

DRUGS (3)
  1. VARIVAX [Suspect]
     Active Substance: VARICELLA-ZOSTER VIRUS STRAIN OKA/MERCK LIVE ANTIGEN
     Route: 065
     Dates: start: 2022
  2. VARIVAX [Suspect]
     Active Substance: VARICELLA-ZOSTER VIRUS STRAIN OKA/MERCK LIVE ANTIGEN
     Route: 065
     Dates: start: 2022
  3. STERILE DILUENT (WATER) [Suspect]
     Active Substance: WATER

REACTIONS (2)
  - Pneumonia [Unknown]
  - Herpes zoster [Unknown]

NARRATIVE: CASE EVENT DATE: 20250217
